FAERS Safety Report 6503804-4 (Version None)
Quarter: 2009Q4

REPORT INFORMATION
  Report Type: 
  Country: None (occurrence: None)
  Receive Date: 20091217
  Receipt Date: 20091211
  Transmission Date: 20100525
  Serious: Yes (Hospitalization)
  Sender: FDA-Public Use
  Company Number: A0835243A

PATIENT
  Age: 65 Year
  Sex: Male

DRUGS (14)
  1. COREG [Suspect]
  2. LANOXIN [Suspect]
  3. COUMADIN [Suspect]
  4. RITUXIMAB [Suspect]
     Indication: RHEUMATOID ARTHRITIS
     Route: 042
     Dates: start: 20071003
  5. ASPIRIN [Suspect]
  6. PREDNISONE [Suspect]
  7. LISINOPRIL [Suspect]
  8. AMIODARONE HCL [Suspect]
  9. VICODIN [Suspect]
  10. AMBIEN [Suspect]
  11. NEXIUM [Suspect]
  12. LASIX [Suspect]
  13. ZOCOR [Suspect]
  14. ATIVAN [Suspect]

REACTIONS (3)
  - CARDIAC FAILURE CONGESTIVE [None]
  - DYSPNOEA [None]
  - PNEUMONIA [None]
